FAERS Safety Report 20089925 (Version 1)
Quarter: 2021Q4

REPORT INFORMATION
  Report Type: Spontaneous
  Country: JP (occurrence: JP)
  Receive Date: 20211119
  Receipt Date: 20211119
  Transmission Date: 20220303
  Serious: Yes (Hospitalization, Other)
  Sender: FDA-Public Use
  Company Number: JP-LUPIN PHARMACEUTICALS INC.-2021-22681

PATIENT
  Age: 2 Year
  Sex: Male

DRUGS (13)
  1. HYDROCORTISONE [Suspect]
     Active Substance: HYDROCORTISONE
     Indication: Acute myeloid leukaemia
     Dosage: 20 MILLIGRAM (INJECTION; SINGLE DOSE)
     Route: 037
  2. MITOXANTRONE [Suspect]
     Active Substance: MITOXANTRONE HYDROCHLORIDE
     Indication: Acute myeloid leukaemia
     Dosage: 5 MILLIGRAM/SQ. METER, QD
     Route: 065
  3. MITOXANTRONE [Suspect]
     Active Substance: MITOXANTRONE HYDROCHLORIDE
     Indication: Acute myeloid leukaemia
  4. METHOTREXATE [Suspect]
     Active Substance: METHOTREXATE
     Indication: Acute myeloid leukaemia
     Dosage: 10 MILLIGRAM (SINGLE DOSE)
     Route: 037
  5. ETOPOSIDE [Suspect]
     Active Substance: ETOPOSIDE
     Indication: Acute myeloid leukaemia
     Dosage: 150 MILLIGRAM/SQ. METER, QD
     Route: 065
  6. CYTARABINE [Suspect]
     Active Substance: CYTARABINE
     Indication: Acute myeloid leukaemia
     Dosage: 200 MILLIGRAM/SQ. METER, QD
     Route: 065
  7. CYTARABINE [Suspect]
     Active Substance: CYTARABINE
     Dosage: 25 MILLIGRAM/SQ. METER
     Route: 037
  8. ETOPOSIDE [Concomitant]
     Active Substance: ETOPOSIDE
     Indication: Acute myeloid leukaemia
     Dosage: 150 MILLIGRAM/SQ. METER, QD (FIRST INDUCTION THERAPY ON DAY 1 TO DAY 5)
     Route: 065
  9. ETOPOSIDE [Concomitant]
     Active Substance: ETOPOSIDE
     Dosage: 100 MILLIGRAM/SQ. METER, QD (SECOND INDUCTION THERAPY ON DAY 1 TO DAY 5)
     Route: 065
  10. IDARUBICIN [Concomitant]
     Active Substance: IDARUBICIN
     Indication: Acute myeloid leukaemia
     Dosage: 10 MILLIGRAM/SQ. METER (ON DAY ONE, AS SECOND INDUCTION THERAPY)
     Route: 065
  11. CYTARABINE [Concomitant]
     Active Substance: CYTARABINE
     Indication: Acute myeloid leukaemia
     Dosage: 200 MILLIGRAM/SQ. METER, QD ((FIRST INDUCTION THERAPY, OVER 12 HOURS FROM FROM DAY 6 TO DAY 12))
     Route: 065
  12. CYTARABINE [Concomitant]
     Active Substance: CYTARABINE
     Dosage: 3 GRAM PER SQUARE METRE, BID AS SECOND INDUCTION THERAPY, FROM DAY 1 TO DAY 3
     Route: 065
  13. CYTARABINE [Concomitant]
     Active Substance: CYTARABINE
     Dosage: 2 GRAM PER SQUARE METRE, BID AS INTENSIFICATION THERAPY FROM DAY 1 TO DAY 5
     Route: 065

REACTIONS (9)
  - Gastroenteritis adenovirus [Recovered/Resolved]
  - Hypernatraemia [Recovering/Resolving]
  - Acidosis [Recovering/Resolving]
  - Diarrhoea [Unknown]
  - Tachycardia [Unknown]
  - Myelosuppression [Unknown]
  - Vomiting [Unknown]
  - Pyrexia [Unknown]
  - Weight decreased [Unknown]
